FAERS Safety Report 8469338-5 (Version None)
Quarter: 2012Q2

REPORT INFORMATION
  Report Type: 
  Country: None (occurrence: None)
  Receive Date: 20120626
  Receipt Date: 20120622
  Transmission Date: 20120825
  Serious: Yes (Other)
  Sender: FDA-Public Use
  Company Number: US-ROCHE-1019411

PATIENT
  Sex: Female
  Weight: 75 kg

DRUGS (6)
  1. MELATONIN [Concomitant]
     Indication: INSOMNIA
     Route: 048
     Dates: start: 20111004
  2. XELODA [Suspect]
     Indication: BREAST CANCER METASTATIC
     Route: 048
     Dates: start: 20110913, end: 20120410
  3. LEVOTHYROXINE [Concomitant]
     Indication: HYPOTHYROIDISM
     Route: 048
     Dates: start: 20110324
  4. XELODA [Suspect]
     Route: 048
     Dates: start: 20111011, end: 20120424
  5. LISINOPRIL [Concomitant]
     Indication: HYPERTENSION
     Route: 048
     Dates: start: 20100406
  6. LORAZEPAM [Concomitant]
     Indication: INSOMNIA
     Route: 048
     Dates: start: 20111013

REACTIONS (8)
  - NEUROPATHY PERIPHERAL [None]
  - DYSPNOEA [None]
  - DECREASED APPETITE [None]
  - NAUSEA [None]
  - PERFORMANCE STATUS DECREASED [None]
  - FATIGUE [None]
  - STOMATITIS [None]
  - DIARRHOEA [None]
